FAERS Safety Report 11440590 (Version 1)
Quarter: 2015Q3

REPORT INFORMATION
  Report Type: Spontaneous
  Country: US (occurrence: US)
  Receive Date: 20150821
  Receipt Date: 20150821
  Transmission Date: 20151125
  Serious: No
  Sender: FDA-Public Use
  Company Number: US-ELI_LILLY_AND_COMPANY-US200706006232

PATIENT
  Sex: Female

DRUGS (1)
  1. CYMBALTA [Suspect]
     Active Substance: DULOXETINE HYDROCHLORIDE
     Indication: FIBROMYALGIA
     Dosage: 60 MG, UNK
     Dates: start: 200609, end: 20070622

REACTIONS (12)
  - Vision blurred [Unknown]
  - Malaise [Unknown]
  - Diarrhoea [Unknown]
  - Weight increased [Unknown]
  - Fatigue [Unknown]
  - Constipation [Unknown]
  - Discomfort [Unknown]
  - Ear discomfort [Unknown]
  - Drug ineffective [Recovered/Resolved]
  - Drug withdrawal syndrome [Unknown]
  - Dizziness [Unknown]
  - Nightmare [Unknown]

NARRATIVE: CASE EVENT DATE: 2006
